FAERS Safety Report 17524981 (Version 1)
Quarter: 2020Q1

REPORT INFORMATION
  Report Type: Spontaneous
  Country: DE (occurrence: DE)
  Receive Date: 20200311
  Receipt Date: 20200311
  Transmission Date: 20200409
  Serious: Yes (Other)
  Sender: FDA-Public Use
  Company Number: NVSC2020DE067947

PATIENT
  Sex: Female

DRUGS (3)
  1. ESTRAMON CONTI 30/95 MIKROGRAMM/24 H TRANSDERMALES PFLASTER [Suspect]
     Active Substance: ESTRADIOL\NORETHINDRONE ACETATE
     Indication: PRODUCT USED FOR UNKNOWN INDICATION
     Dosage: UNK (STRENGTH: 30/95 MCG/HR)
     Route: 065
     Dates: start: 2020
  2. METOPROLOL SUCCINATE. [Concomitant]
     Active Substance: METOPROLOL SUCCINATE
     Indication: PRODUCT USED FOR UNKNOWN INDICATION
     Dosage: UNK
     Route: 065
  3. L-THYROXINE [Concomitant]
     Active Substance: LEVOTHYROXINE
     Indication: PRODUCT USED FOR UNKNOWN INDICATION
     Dosage: UNK
     Route: 065

REACTIONS (5)
  - Concomitant disease aggravated [Unknown]
  - Arthralgia [Unknown]
  - Flatulence [Unknown]
  - Haemorrhage [Unknown]
  - Sleep disorder [Unknown]

NARRATIVE: CASE EVENT DATE: 2020
